FAERS Safety Report 8632481 (Version 3)
Quarter: 2012Q4

REPORT INFORMATION
  Report Type: 
  Country: US (occurrence: US)
  Receive Date: 20120625
  Receipt Date: 20121108
  Transmission Date: 20130627
  Serious: Yes (Other)
  Sender: FDA-Public Use
  Company Number: US-BAYER-2012-061074

PATIENT
  Age: 21 Year
  Sex: Female
  Weight: 81.63 kg

DRUGS (5)
  1. YASMIN [Suspect]
     Indication: CONTRACEPTION
     Dosage: UNK
     Dates: start: 20060802, end: 20080713
  2. OCELLA [Suspect]
     Indication: CONTRACEPTION
     Dosage: UNK
     Dates: start: 20080714, end: 20100510
  3. IBUPROFEN [Concomitant]
     Indication: PAIN
     Dosage: 600 mg, UNK
     Route: 048
     Dates: start: 20100429
  4. NSAID^S [Concomitant]
     Dosage: UNK UNK, PRN
     Route: 048
  5. ALBUTEROL [Concomitant]
     Dosage: UNK
     Dates: start: 2007

REACTIONS (4)
  - Deep vein thrombosis [Recovered/Resolved]
  - Pain [None]
  - Pain in extremity [Recovered/Resolved]
  - Oedema peripheral [Recovered/Resolved]
